FAERS Safety Report 5199333-3 (Version None)
Quarter: 2006Q4

REPORT INFORMATION
  Report Type: 
  Country: None (occurrence: None)
  Receive Date: 20060919
  Receipt Date: 20060803
  Transmission Date: 20070319
  Serious: No
  Sender: FDA-Public Use
  Company Number: BDI-008502

PATIENT
  Age: 62 Year
  Sex: Female
  Weight: 52.27 kg

DRUGS (9)
  1. MULTIHANCE [Suspect]
     Indication: NUCLEAR MAGNETIC RESONANCE IMAGING BRAIN
     Dosage: 15 ML ONCE IV
     Route: 042
     Dates: start: 20060802, end: 20060802
  2. MULTIHANCE [Suspect]
     Indication: SYNCOPE
     Dosage: 15 ML ONCE IV
     Route: 042
     Dates: start: 20060802, end: 20060802
  3. ADVAIR DISKUS 100/50 [Concomitant]
  4. ALBUTEROL [Concomitant]
  5. LIPITOR /01326101/ [Concomitant]
  6. SY [Concomitant]
  7. PREMARIN [Concomitant]
  8. TENORMIN [Concomitant]
  9. XANAX [Concomitant]

REACTIONS (1)
  - HYPERSENSITIVITY [None]
